FAERS Safety Report 9171257 (Version 1)
Quarter: 2013Q1

REPORT INFORMATION
  Report Type: Spontaneous
  Country: US (occurrence: US)
  Receive Date: 20130319
  Receipt Date: 20130319
  Transmission Date: 20140127
  Serious: Yes (Hospitalization)
  Sender: FDA-Public Use
  Company Number: US-PFIZER INC-2013090355

PATIENT
  Age: 79 Year
  Sex: Male
  Weight: 81.63 kg

DRUGS (3)
  1. LOPID [Suspect]
     Indication: BLOOD CHOLESTEROL INCREASED
     Dosage: 600 MG, DAILY
     Dates: end: 20130225
  2. LOPID [Suspect]
     Indication: BLOOD TRIGLYCERIDES INCREASED
  3. AMARYL [Concomitant]
     Indication: DIABETES MELLITUS
     Dosage: 2 MG, DAILY

REACTIONS (6)
  - Cerebrovascular accident [Unknown]
  - Dysstasia [Unknown]
  - Mental impairment [Unknown]
  - Speech disorder [Unknown]
  - Disturbance in attention [Unknown]
  - Visual impairment [Unknown]
